FAERS Safety Report 9791430 (Version 1)
Quarter: 2014Q1

REPORT INFORMATION
  Report Type: Spontaneous
  Country: JP (occurrence: JP)
  Receive Date: 20140101
  Receipt Date: 20140101
  Transmission Date: 20141002
  Serious: Yes (Other)
  Sender: FDA-Public Use
  Company Number: PHHY2013JP153272

PATIENT
  Sex: Female

DRUGS (1)
  1. NEORAL [Suspect]
     Route: 048

REACTIONS (1)
  - Arthropathy [Unknown]
